FAERS Safety Report 23239336 (Version 4)
Quarter: 2024Q1

REPORT INFORMATION
  Report Type: Report from Study
  Country: US (occurrence: US)
  Receive Date: 20231129
  Receipt Date: 20240214
  Transmission Date: 20240409
  Serious: Yes (Other)
  Sender: FDA-Public Use
  Company Number: US-ABBVIE-5510348

PATIENT
  Age: 73 Year
  Sex: Male
  Weight: 74.389 kg

DRUGS (2)
  1. SKYRIZI [Suspect]
     Active Substance: RISANKIZUMAB-RZAA
     Indication: Psoriasis
     Route: 058
     Dates: start: 20221216, end: 20230925
  2. SKYRIZI [Suspect]
     Active Substance: RISANKIZUMAB-RZAA
     Route: 042
     Dates: start: 20240112

REACTIONS (1)
  - Coronary artery occlusion [Unknown]

NARRATIVE: CASE EVENT DATE: 20231030
